FAERS Safety Report 23432559 (Version 5)
Quarter: 2024Q4

REPORT INFORMATION
  Report Type: Spontaneous
  Country: CA (occurrence: CA)
  Receive Date: 20240123
  Receipt Date: 20241203
  Transmission Date: 20250115
  Serious: Yes (Hospitalization, Other)
  Sender: PFIZER
  Company Number: CA-PFIZER INC-202400008010

PATIENT
  Age: 43 Year
  Sex: Female

DRUGS (12)
  1. ABRILADA [Suspect]
     Active Substance: ADALIMUMAB-AFZB
     Indication: Hidradenitis
     Dosage: 40 MG, WEEKLY (WEEK 0 = 160MG, WEEK 2 = 80MG)
     Route: 058
     Dates: start: 20231126
  2. ABRILADA [Suspect]
     Active Substance: ADALIMUMAB-AFZB
     Dosage: 1 DF, REINDUCTION: 160 MG ON WEEK 0, 80 MG ON WEEK 2, 40 MG ON WEEK 4 THEN EVERY WEEK
     Route: 058
     Dates: start: 20240519
  3. ABRILADA [Suspect]
     Active Substance: ADALIMUMAB-AFZB
     Dosage: 1 DF, REINDUCTION: 160 MG ON WEEK 0, 80 MG ON WEEK 2, 40 MG ON WEEK 4 THEN EVERY WEEK
     Route: 058
     Dates: start: 20241126
  4. EFFEXOR [Concomitant]
     Active Substance: VENLAFAXINE HYDROCHLORIDE
     Dosage: 1 DF
  5. ELIQUIS [Concomitant]
     Active Substance: APIXABAN
     Dosage: 1 DF
  6. LAMICTAL [Concomitant]
     Active Substance: LAMOTRIGINE
     Dosage: 1 DF
  7. METFORMIN [Concomitant]
     Active Substance: METFORMIN HYDROCHLORIDE
     Dosage: 1 DF
  8. OZEMPIC [Concomitant]
     Active Substance: SEMAGLUTIDE
     Dosage: 1 DF
  9. ROSUVASTATIN [Concomitant]
     Active Substance: ROSUVASTATIN
     Dosage: 1 DF
  10. SEROQUEL [Concomitant]
     Active Substance: QUETIAPINE FUMARATE
     Dosage: 1 DF
  11. SYNTHROID [Concomitant]
     Active Substance: LEVOTHYROXINE SODIUM
     Dosage: 1 DF
  12. VYVANSE [Concomitant]
     Active Substance: LISDEXAMFETAMINE DIMESYLATE
     Dosage: 1 DF (VIVANCE )

REACTIONS (5)
  - Urinary tract infection bacterial [Recovered/Resolved]
  - Pyelonephritis [Not Recovered/Not Resolved]
  - Nephrolithiasis [Recovering/Resolving]
  - Pyrexia [Recovered/Resolved]
  - White blood cell count increased [Not Recovered/Not Resolved]

NARRATIVE: CASE EVENT DATE: 20240101
